FAERS Safety Report 15770736 (Version 2)
Quarter: 2019Q1

REPORT INFORMATION
  Report Type: Report from Study
  Country: BR (occurrence: BR)
  Receive Date: 20181228
  Receipt Date: 20190125
  Transmission Date: 20190417
  Serious: Yes (Other)
  Sender: FDA-Public Use
  Company Number: PHHY2018BR188882

PATIENT
  Age: 64 Year
  Sex: Female
  Weight: 60 kg

DRUGS (6)
  1. AMOXICILLIN + CLAVULANATE POTASSIUM [Suspect]
     Active Substance: AMOXICILLIN\CLAVULANATE POTASSIUM
     Dosage: 500MG+125MG (1 CAPSULE EVERY 8 HRS)
     Route: 048
     Dates: start: 20181209, end: 20181210
  2. AMOXICILLIN + CLAVULANATE POTASSIUM [Suspect]
     Active Substance: AMOXICILLIN\CLAVULANATE POTASSIUM
     Indication: DENTAL CARE
     Dosage: 500MG+125MG (1 CAPSULE EVERY 8 HRS)
     Route: 048
     Dates: start: 20181207
  3. NIMESULIDE [Concomitant]
     Active Substance: NIMESULIDE
     Dosage: ONE CAPSULE AT EVERY 12 HRS
     Route: 048
     Dates: start: 20181208
  4. AMOXICILLIN + CLAVULANATE POTASSIUM [Suspect]
     Active Substance: AMOXICILLIN\CLAVULANATE POTASSIUM
     Dosage: 500MG+125MG (1 CAPSULE EVERY 8 HRS)
     Route: 048
     Dates: start: 20181208
  5. NIMESULIDE [Concomitant]
     Active Substance: NIMESULIDE
     Indication: DENTAL CARE
     Dosage: ONE CAPSULE AT EVERY 12 HRS
     Route: 048
     Dates: start: 20181207
  6. NIMESULIDE [Concomitant]
     Active Substance: NIMESULIDE
     Dosage: ONE CAPSULE AT EVERY 12 HRS
     Route: 048
     Dates: start: 20181209, end: 20181210

REACTIONS (12)
  - Dyspnoea [Recovered/Resolved]
  - Insomnia [Recovered/Resolved]
  - Suffocation feeling [Recovering/Resolving]
  - Aphonia [Recovered/Resolved]
  - Cough [Recovered/Resolved]
  - Dysphagia [Recovered/Resolved]
  - Rhinitis [Recovered/Resolved]
  - Oropharyngeal pain [Recovered/Resolved]
  - Palpitations [Recovered/Resolved]
  - Choking sensation [Recovered/Resolved]
  - Rhinorrhoea [Recovering/Resolving]
  - Throat lesion [Recovering/Resolving]

NARRATIVE: CASE EVENT DATE: 20181207
